FAERS Safety Report 5596941-2 (Version None)
Quarter: 2007Q4

REPORT INFORMATION
  Report Type: 
  Country: None (occurrence: None)
  Receive Date: 20071220
  Receipt Date: 20071026
  Transmission Date: 20080405
  Serious: Yes (Other)
  Sender: FDA-Public Use
  Company Number: A03200706208

PATIENT
  Age: 27 Year
  Sex: Female

DRUGS (1)
  1. AMBIEN [Suspect]
     Dosage: - ORAL
     Route: 048

REACTIONS (4)
  - AGGRESSION [None]
  - DRUG INEFFECTIVE [None]
  - HALLUCINATION [None]
  - SOMNAMBULISM [None]
